FAERS Safety Report 10410484 (Version 2)
Quarter: 2014Q3

REPORT INFORMATION
  Report Type: Spontaneous
  Country: FR (occurrence: FR)
  Receive Date: 20140826
  Receipt Date: 20140924
  Transmission Date: 20150326
  Serious: Yes (Hospitalization)
  Sender: FDA-Public Use
  Company Number: FR-GLAXOSMITHKLINE-B1025294A

PATIENT
  Age: 81 Year
  Sex: Female

DRUGS (8)
  1. COAPROVEL [Concomitant]
     Active Substance: HYDROCHLOROTHIAZIDE\IRBESARTAN
  2. BETADINE [Concomitant]
     Active Substance: POVIDONE-IODINE
     Route: 061
  3. ZELITREX [Suspect]
     Active Substance: VALACYCLOVIR HYDROCHLORIDE
     Indication: HERPES ZOSTER
     Route: 048
     Dates: start: 20140702
  4. EBASTINE [Concomitant]
     Active Substance: EBASTINE
  5. MONOTILDIEM [Concomitant]
     Active Substance: DILTIAZEM
  6. ELISOR [Concomitant]
     Active Substance: PRAVASTATIN SODIUM
  7. INEXIUM [Concomitant]
     Active Substance: ESOMEPRAZOLE
  8. KLIPAL [Concomitant]
     Active Substance: ACETAMINOPHEN\CODEINE PHOSPHATE
     Dates: start: 20140620, end: 20140622

REACTIONS (1)
  - Acute generalised exanthematous pustulosis [Recovering/Resolving]

NARRATIVE: CASE EVENT DATE: 20140705
